FAERS Safety Report 4596388-1 (Version None)
Quarter: 2005Q1

REPORT INFORMATION
  Report Type: 
  Country: None (occurrence: None)
  Receive Date: 20050228
  Receipt Date: 20050214
  Transmission Date: 20050727
  Serious: Yes (Hospitalization)
  Sender: FDA-Public Use
  Company Number: 2004AP05324

PATIENT
  Age: 67 Year
  Sex: Male
  Weight: 48 kg

DRUGS (17)
  1. IRESSA [Suspect]
     Indication: NON-SMALL CELL LUNG CANCER
     Dosage: 250 MG DAILY PO
     Route: 048
     Dates: start: 20040929, end: 20041013
  2. NAPROXEN [Suspect]
     Indication: CANCER PAIN
     Dosage: 600 MG DAILY PO
     Route: 048
     Dates: start: 20031226, end: 20041013
  3. OXYCONTIN [Concomitant]
  4. ZYRTEC [Concomitant]
  5. MYSLEE [Concomitant]
  6. ARASENA A [Concomitant]
  7. HIBIDIL [Concomitant]
  8. GEMCITABINE [Concomitant]
  9. VINORELBINE [Concomitant]
  10. GASTER [Concomitant]
  11. MUCOSTA [Concomitant]
  12. GENTACIN [Concomitant]
  13. THERADIA-C-PASTA [Concomitant]
  14. PURASUCHIBES U [Concomitant]
  15. RADIATION THERAPY [Concomitant]
  16. CARBOPLATIN [Concomitant]
  17. PACLITAXEL [Concomitant]

REACTIONS (11)
  - BLOOD AMYLASE INCREASED [None]
  - GASTRIC PH INCREASED [None]
  - GASTRIC ULCER PERFORATION [None]
  - HEPATIC FUNCTION ABNORMAL [None]
  - HERPES ZOSTER [None]
  - HYPOALBUMINAEMIA [None]
  - NAIL TINEA [None]
  - PERITONITIS [None]
  - PROTEIN TOTAL DECREASED [None]
  - PRURITUS [None]
  - REFLUX OESOPHAGITIS [None]
